FAERS Safety Report 9789658 (Version 2)
Quarter: 2014Q1

REPORT INFORMATION
  Report Type: Report from Study
  Country: JP (occurrence: JP)
  Receive Date: 20131231
  Receipt Date: 20140221
  Transmission Date: 20141002
  Serious: Yes (Death, Life-Threatening, Other)
  Sender: FDA-Public Use
  Company Number: JP-ROCHE-1326774

PATIENT
  Sex: Female
  Weight: 34 kg

DRUGS (4)
  1. ALTEPLASE [Suspect]
     Indication: EMBOLIC STROKE
     Dosage: DAILY DOSE-12MILLION IU
     Route: 040
     Dates: start: 20110409
  2. GLYCEOL [Concomitant]
     Route: 065
     Dates: start: 20110409, end: 20110409
  3. TICLOPIDINE HCL [Concomitant]
     Route: 065
  4. RADICUT [Concomitant]
     Route: 065
     Dates: start: 20110409

REACTIONS (3)
  - Cerebral infarction [Fatal]
  - Haemorrhagic cerebral infarction [Not Recovered/Not Resolved]
  - Tonic convulsion [Recovered/Resolved with Sequelae]
